FAERS Safety Report 22374720 (Version 1)
Quarter: 2023Q2

REPORT INFORMATION
  Report Type: Report from Study
  Country: KR (occurrence: KR)
  Receive Date: 20230526
  Receipt Date: 20230526
  Transmission Date: 20230721
  Serious: Yes (Death, Life-Threatening, Hospitalization)
  Sender: FDA-Public Use
  Company Number: KR-GILEAD-2023-0628362

PATIENT
  Sex: Male
  Weight: 63.7 kg

DRUGS (9)
  1. SACITUZUMAB GOVITECAN-HZIY [Suspect]
     Active Substance: SACITUZUMAB GOVITECAN-HZIY
     Indication: Transitional cell carcinoma
     Dosage: 7.5 MG/KG
     Route: 042
     Dates: start: 20230427, end: 20230503
  2. CISPLATIN [Suspect]
     Active Substance: CISPLATIN
     Indication: Transitional cell carcinoma
     Dosage: 35 ML/M2
     Route: 042
     Dates: start: 20230427, end: 20230503
  3. GLICLAZIDE [Concomitant]
     Active Substance: GLICLAZIDE
     Indication: Diabetes mellitus
     Dosage: 60 MG, QD
     Dates: start: 20180718
  4. SUGAMET XR [Concomitant]
     Indication: Diabetes mellitus
     Dosage: 5 MG, QD
     Dates: start: 20230329
  5. NORVASC [Concomitant]
     Active Substance: AMLODIPINE BESYLATE
     Indication: Hypertension
     Dosage: 10 MG, QD
     Dates: start: 20190314
  6. DICHLOZID [Concomitant]
     Indication: Hypertension
     Dosage: 12.5 MG, QD
     Dates: start: 20190907
  7. MEGACE [Concomitant]
     Active Substance: MEGESTROL ACETATE
     Indication: Decreased appetite
     Dosage: 10 ML, QD
     Dates: start: 20180719
  8. PROPIVERINE [Concomitant]
     Active Substance: PROPIVERINE
     Dosage: UNK
     Dates: start: 20211012
  9. THRUPASS ODT [Concomitant]
     Dosage: UNK
     Dates: start: 20180717

REACTIONS (1)
  - Febrile neutropenia [Fatal]

NARRATIVE: CASE EVENT DATE: 20230510
